FAERS Safety Report 7447066-2 (Version None)
Quarter: 2011Q2

REPORT INFORMATION
  Report Type: 
  Country: None (occurrence: None)
  Receive Date: 20110429
  Receipt Date: 20110415
  Transmission Date: 20111010
  Serious: Yes (Other)
  Sender: FDA-Public Use
  Company Number: US-JNJFOC-20110407868

PATIENT
  Age: 74 Year
  Sex: Male

DRUGS (1)
  1. ROLAIDS CHERRY [Suspect]
     Indication: GASTROOESOPHAGEAL REFLUX DISEASE
     Dosage: ^2-3 TABLETS IN A DAY^
     Route: 048

REACTIONS (5)
  - PRESYNCOPE [None]
  - PRODUCT QUALITY ISSUE [None]
  - RASH GENERALISED [None]
  - OFF LABEL USE [None]
  - BLOOD PRESSURE DECREASED [None]
